FAERS Safety Report 8535391-3 (Version None)
Quarter: 2012Q3

REPORT INFORMATION
  Report Type: 
  Country: None (occurrence: None)
  Receive Date: 20120725
  Receipt Date: 20120716
  Transmission Date: 20120928
  Serious: No
  Sender: FDA-Public Use
  Company Number: US-BIOGENIDEC-2012BI024496

PATIENT
  Sex: Female

DRUGS (2)
  1. AMPYRA [Concomitant]
  2. AVONEX [Suspect]
     Indication: MULTIPLE SCLEROSIS
     Route: 030
     Dates: start: 20000825

REACTIONS (3)
  - ANXIETY [None]
  - PHOBIA [None]
  - MULTIPLE SCLEROSIS RELAPSE [None]
